FAERS Safety Report 8606499-9 (Version None)
Quarter: 2012Q3

REPORT INFORMATION
  Report Type: 
  Country: None (occurrence: None)
  Receive Date: 20120820
  Receipt Date: 20120815
  Transmission Date: 20120928
  Serious: Yes (Life-Threatening)
  Sender: FDA-Public Use
  Company Number: US-ASTRAZENECA-2012SE52951

PATIENT
  Age: 58 Year
  Sex: Male
  Weight: 108.9 kg

DRUGS (4)
  1. NEXIUM [Suspect]
     Indication: DYSPEPSIA
     Route: 048
     Dates: start: 20090101
  2. LIPITOR [Concomitant]
  3. CARVEDILOL [Concomitant]
     Indication: CARDIAC DISORDER
     Route: 048
  4. ENALAPRIL MALEATE [Concomitant]
     Indication: CARDIAC DISORDER
     Route: 048

REACTIONS (3)
  - ADVERSE EVENT [None]
  - CARDIAC FAILURE [None]
  - CARDIAC DISORDER [None]
